FAERS Safety Report 4601964-3 (Version None)
Quarter: 2005Q1

REPORT INFORMATION
  Report Type: 
  Country: None (occurrence: None)
  Receive Date: 20050131
  Receipt Date: 20041122
  Transmission Date: 20050727
  Serious: No
  Sender: FDA-Public Use
  Company Number: 200418981US

PATIENT
  Age: 45 Year
  Sex: Male

DRUGS (3)
  1. KETEK [Suspect]
     Indication: CHRONIC SINUSITIS
     Dosage: 400 MG BID PO
     Route: 048
     Dates: start: 20041115, end: 20041120
  2. VITAMIN E [Concomitant]
  3. MULTIVITAMIN (NOS) [Concomitant]

REACTIONS (1)
  - VISION BLURRED [None]
